FAERS Safety Report 7784160-0 (Version None)
Quarter: 2011Q3

REPORT INFORMATION
  Report Type: 
  Country: None (occurrence: None)
  Receive Date: 20110928
  Receipt Date: 20110915
  Transmission Date: 20111222
  Serious: Yes (Hospitalization, Other)
  Sender: FDA-Public Use
  Company Number: US-ELI_LILLY_AND_COMPANY-US201108008897

PATIENT
  Sex: Female

DRUGS (8)
  1. GABAPENTIN [Concomitant]
     Indication: NEUROPATHY PERIPHERAL
  2. FORTEO [Suspect]
     Indication: OSTEOPOROSIS
     Dosage: 20 UG, QD
     Dates: end: 20110821
  3. ASPIRIN [Concomitant]
  4. NORVASC [Concomitant]
  5. VITAMIN D [Concomitant]
     Dosage: 50000 U, MONTHLY (1/M)
  6. PRENATAL VITAMINS                  /01549301/ [Concomitant]
  7. CALCIUM CARBONATE [Concomitant]
     Dosage: 600 MG, UNK
  8. FISH OIL [Concomitant]

REACTIONS (15)
  - HEART RATE DECREASED [None]
  - VERTIGO [None]
  - HEADACHE [None]
  - DIZZINESS [None]
  - IMPAIRED HEALING [None]
  - ORAL INFECTION [None]
  - GINGIVAL DISORDER [None]
  - SKIN ATROPHY [None]
  - SPIDER VEIN [None]
  - DRUG DOSE OMISSION [None]
  - GINGIVAL PAIN [None]
  - BLOOD PRESSURE DECREASED [None]
  - JOINT SWELLING [None]
  - PAIN [None]
  - MASS [None]
